FAERS Safety Report 6393895-6 (Version None)
Quarter: 2009Q4

REPORT INFORMATION
  Report Type: 
  Country: None (occurrence: None)
  Receive Date: 20091008
  Receipt Date: 20090925
  Transmission Date: 20100525
  Serious: Yes (Hospitalization)
  Sender: FDA-Public Use
  Company Number: IT-PFIZER INC-2009262258

PATIENT
  Age: 80 Year

DRUGS (6)
  1. CARDURA [Suspect]
     Indication: HYPERTENSION
     Dosage: 4 MG, 1X/DAY
     Dates: start: 20080801, end: 20090805
  2. LASIX [Suspect]
     Indication: HYPERTENSION
     Dosage: 25 MG, 1X/DAY
     Route: 048
     Dates: start: 20080801, end: 20090805
  3. CARVEDILOL [Concomitant]
     Dosage: UNK
  4. COAPROVEL [Concomitant]
     Dosage: UNK
  5. CATAPRESSAN TTS [Concomitant]
     Dosage: UNK
     Route: 062
  6. WARFARIN SODIUM [Concomitant]
     Dosage: UNK

REACTIONS (2)
  - HYPONATRAEMIA [None]
  - LETHARGY [None]
